FAERS Safety Report 4634753-4 (Version None)
Quarter: 2005Q2

REPORT INFORMATION
  Report Type: 
  Country: None (occurrence: None)
  Receive Date: 20050412
  Receipt Date: 20050323
  Transmission Date: 20051028
  Serious: Yes (Hospitalization)
  Sender: FDA-Public Use
  Company Number: 05-165

PATIENT
  Sex: Female

DRUGS (1)
  1. ISOPTIN [Suspect]
     Dosage: 1000MG, ONCE, ORAL
     Route: 048
     Dates: start: 20050319, end: 20050319

REACTIONS (2)
  - OVERDOSE [None]
  - SUICIDE ATTEMPT [None]
